FAERS Safety Report 16146681 (Version 1)
Quarter: 2019Q2

REPORT INFORMATION
  Report Type: Spontaneous
  Country: US (occurrence: US)
  Receive Date: 20190402
  Receipt Date: 20190402
  Transmission Date: 20190711
  Serious: No
  Sender: FDA-Public Use
  Company Number: US-TAKEDA-2019TUS017808

PATIENT
  Age: 96 Year
  Sex: Female
  Weight: 40.82 kg

DRUGS (7)
  1. PRESERVISION [Concomitant]
     Active Substance: MINERALS\VITAMINS
     Indication: MACULAR DEGENERATION
     Dosage: UNK
     Route: 048
  2. ASPIRIN                            /00002701/ [Concomitant]
     Active Substance: ASPIRIN
     Dosage: 81 MILLIGRAM
     Route: 048
  3. BUSPIRONE [Concomitant]
     Active Substance: BUSPIRONE HYDROCHLORIDE
     Dosage: UNK UNK, BID
     Route: 048
  4. CALCIUM [Concomitant]
     Active Substance: CALCIUM
     Dosage: 333 MILLIGRAM
     Route: 048
  5. ROZEREM [Suspect]
     Active Substance: RAMELTEON
     Indication: INSOMNIA
     Dosage: 8 MILLIGRAM
     Route: 048
     Dates: start: 20190322
  6. ACETAMINOPHEN. [Concomitant]
     Active Substance: ACETAMINOPHEN
     Dosage: 325 MILLIGRAM
     Route: 048
  7. LATANOPROST. [Concomitant]
     Active Substance: LATANOPROST
     Indication: GLAUCOMA
     Dosage: UNK
     Route: 048

REACTIONS (7)
  - Intentional self-injury [Unknown]
  - Wrong technique in product usage process [Unknown]
  - Fatigue [Not Recovered/Not Resolved]
  - Somnolence [Not Recovered/Not Resolved]
  - Drug ineffective [Unknown]
  - Agitation [Recovered/Resolved]
  - Abnormal behaviour [Recovered/Resolved]

NARRATIVE: CASE EVENT DATE: 20190322
